FAERS Safety Report 9971397 (Version 1)
Quarter: 2014Q1

REPORT INFORMATION
  Report Type: Report from Study
  Country: US (occurrence: US)
  Receive Date: 20140306
  Receipt Date: 20140306
  Transmission Date: 20141002
  Serious: No
  Sender: FDA-Public Use
  Company Number: US-ABBVIE-13P-163-1147911-00

PATIENT
  Age: 47 Year
  Sex: Female

DRUGS (6)
  1. HUMIRA [Suspect]
     Indication: PSORIASIS
     Dates: start: 20120403, end: 20130225
  2. HUMIRA [Suspect]
     Dosage: LOADING DOSE
     Dates: start: 20130913, end: 20130913
  3. HUMIRA [Suspect]
     Dates: start: 2012, end: 2012
  4. CALCIUM [Concomitant]
     Indication: PRODUCT USED FOR UNKNOWN INDICATION
  5. VITAMIN D [Concomitant]
     Indication: PRODUCT USED FOR UNKNOWN INDICATION
  6. PRENATAL VITAMINS [Concomitant]
     Indication: SUPPLEMENTATION THERAPY

REACTIONS (6)
  - Device malfunction [Recovered/Resolved]
  - Device malfunction [Recovered/Resolved]
  - Injection site mass [Recovered/Resolved]
  - Psoriasis [Not Recovered/Not Resolved]
  - Injection site haemorrhage [Recovered/Resolved]
  - Nervousness [Recovered/Resolved]
